FAERS Safety Report 9855052 (Version 1)
Quarter: 2014Q1

REPORT INFORMATION
  Report Type: Report from Study
  Country: US (occurrence: US)
  Receive Date: 20140130
  Receipt Date: 20140130
  Transmission Date: 20141002
  Serious: Yes (Hospitalization)
  Sender: FDA-Public Use
  Company Number: US-US-EMD SERONO, INC.-7264839

PATIENT
  Sex: Female
  Weight: 86 kg

DRUGS (2)
  1. REBIF [Suspect]
     Indication: MULTIPLE SCLEROSIS
     Route: 058
     Dates: start: 20111026
  2. REBIF [Suspect]
     Route: 058

REACTIONS (3)
  - Influenza [Unknown]
  - Multiple sclerosis relapse [Unknown]
  - Influenza like illness [Unknown]
